FAERS Safety Report 10044725 (Version 1)
Quarter: 2014Q1

REPORT INFORMATION
  Report Type: Spontaneous
  Country: GB (occurrence: None)
  Receive Date: 20140326
  Receipt Date: 20140326
  Transmission Date: 20141002
  Serious: Yes (Life-Threatening)
  Sender: FDA-Public Use
  Company Number: PI-10211

PATIENT
  Age: 81 Year
  Sex: Female

DRUGS (3)
  1. CHLORAPREP [Suspect]
     Indication: SKIN DISORDER
     Dosage: UNKNOWN, ONCE, TOPICAL
     Route: 061
     Dates: start: 20090901, end: 20120918
  2. ALFACALCIDOL [Concomitant]
  3. EPREX [Concomitant]

REACTIONS (3)
  - Scab [None]
  - Erythema [None]
  - Skin irritation [None]
